FAERS Safety Report 15681958 (Version 2)
Quarter: 2018Q4

REPORT INFORMATION
  Report Type: Spontaneous
  Country: US (occurrence: US)
  Receive Date: 20181203
  Receipt Date: 20181211
  Transmission Date: 20190205
  Serious: Yes (Hospitalization, Other)
  Sender: FDA-Public Use
  Company Number: US-PFIZER INC-2018490244

PATIENT
  Age: 48 Year
  Sex: Male

DRUGS (2)
  1. TESTOSTERONE CIPIONATE [Suspect]
     Active Substance: TESTOSTERONE
     Indication: PERFORMANCE ENHANCING PRODUCT USE
     Dosage: UNK, CYCLIC (IN CYCLICAL FASHION FOR 7 MONTHS EACH YEAR FOR THE LAST 4 YEARS)
  2. AMFETAMINE/DEXAMFETAMINE [Interacting]
     Active Substance: AMPHETAMINE SULFATE\DEXTROAMPHETAMINE
     Indication: PERFORMANCE ENHANCING PRODUCT USE
     Dosage: 60 MG, DAILY (IN CYCLICAL FASHION FOR 7 MONTHS EACH YEAR FOR THE LAST 4 YEARS)

REACTIONS (3)
  - Intentional product misuse [Recovered/Resolved]
  - Food interaction [Recovered/Resolved]
  - Psychotic disorder [Recovered/Resolved]
